FAERS Safety Report 7994518-2 (Version None)
Quarter: 2011Q4

REPORT INFORMATION
  Report Type: 
  Country: None (occurrence: None)
  Receive Date: 20111220
  Receipt Date: 20111207
  Transmission Date: 20120403
  Serious: Yes (Other)
  Sender: FDA-Public Use
  Company Number: JP-SANOFI-AVENTIS-2011SA072212

PATIENT
  Age: 47 Year
  Sex: Female
  Weight: 60 kg

DRUGS (1)
  1. ALLEGRA [Suspect]
     Indication: URTICARIA
     Route: 048
     Dates: start: 20111028, end: 20111028

REACTIONS (7)
  - HOT FLUSH [None]
  - URTICARIA [None]
  - OEDEMA PERIPHERAL [None]
  - ANAPHYLACTIC REACTION [None]
  - EYELID OEDEMA [None]
  - CHOKING SENSATION [None]
  - PALPITATIONS [None]
